FAERS Safety Report 5077996-0 (Version None)
Quarter: 2006Q3

REPORT INFORMATION
  Report Type: 
  Country: None (occurrence: None)
  Receive Date: 20060811
  Receipt Date: 20060731
  Transmission Date: 20061208
  Serious: Yes (Hospitalization)
  Sender: FDA-Public Use
  Company Number: FR-JNJFOC-20060705901

PATIENT
  Age: 85 Year
  Sex: Female

DRUGS (10)
  1. OFLOCET [Suspect]
     Indication: ANTIBIOTIC PROPHYLAXIS
     Route: 048
     Dates: start: 20060425, end: 20060515
  2. ALDACTONE [Suspect]
     Indication: DRUG USE FOR UNKNOWN INDICATION
     Route: 048
     Dates: start: 20060425, end: 20060520
  3. AUGMENTIN [Suspect]
     Indication: DRUG USE FOR UNKNOWN INDICATION
     Route: 048
     Dates: start: 20060425, end: 20060509
  4. NEXIUM [Suspect]
     Route: 048
  5. NEXIUM [Suspect]
     Indication: DRUG USE FOR UNKNOWN INDICATION
     Route: 048
  6. CALCIPARINE [Suspect]
     Indication: DRUG USE FOR UNKNOWN INDICATION
     Route: 058
     Dates: start: 20060420, end: 20060518
  7. OMEPRAZOLE [Suspect]
     Indication: DRUG USE FOR UNKNOWN INDICATION
     Route: 042
     Dates: start: 20060420, end: 20060525
  8. DI ANTALVIC [Suspect]
     Indication: DRUG USE FOR UNKNOWN INDICATION
     Route: 048
     Dates: start: 20060425, end: 20060513
  9. ALDACTAZINE [Concomitant]
     Route: 048
  10. NIDREL [Concomitant]
     Route: 048

REACTIONS (1)
  - ECZEMA [None]
